FAERS Safety Report 5732823-0 (Version None)
Quarter: 2008Q2

REPORT INFORMATION
  Report Type: 
  Country: None (occurrence: None)
  Receive Date: 20080507
  Receipt Date: 20080507
  Transmission Date: 20081010
  Serious: Yes (Life-Threatening)
  Sender: FDA-Public Use
  Company Number: None

PATIENT
  Age: 54 Year
  Sex: Male
  Weight: 77.1115 kg

DRUGS (8)
  1. DESFLURANE [Suspect]
     Dosage: AS NEEDED ENDOTRACHEA
     Route: 007
  2. LABETALOL HCL [Suspect]
     Dosage: 5MG ONE IV BOLUS
     Route: 040
  3. LIDOCAINE [Concomitant]
  4. BUPIVACAINE [Concomitant]
  5. ROCURONIUM BROMIDE [Concomitant]
  6. FENTANYL [Concomitant]
  7. MIDAZOLAM HCL [Concomitant]
  8. REMIFENTANYL [Concomitant]

REACTIONS (6)
  - BLOOD PH DECREASED [None]
  - BRADYCARDIA [None]
  - CARDIAC ARREST [None]
  - CARDIOMYOPATHY [None]
  - HYPERTENSION [None]
  - PCO2 INCREASED [None]
